FAERS Safety Report 8287352-X (Version None)
Quarter: 2012Q2

REPORT INFORMATION
  Report Type: 
  Country: None (occurrence: None)
  Receive Date: 20120416
  Receipt Date: 20120412
  Transmission Date: 20120825
  Serious: No
  Sender: FDA-Public Use
  Company Number: US-TEVA-333077USA

PATIENT
  Sex: Male
  Weight: 67.192 kg

DRUGS (2)
  1. COPAXONE [Suspect]
     Indication: MULTIPLE SCLEROSIS
     Route: 058
     Dates: start: 20090617
  2. SIMVASTATIN [Concomitant]

REACTIONS (1)
  - FLUSHING [None]
